FAERS Safety Report 4811088-8 (Version None)
Quarter: 2005Q4

REPORT INFORMATION
  Report Type: 
  Country: None (occurrence: None)
  Receive Date: 20051025
  Receipt Date: 20051007
  Transmission Date: 20060501
  Serious: Yes (Hospitalization)
  Sender: FDA-Public Use
  Company Number: CIO05016926

PATIENT
  Sex: Male

DRUGS (1)
  1. CREST WHITENING EXPRESSIONS, CINNAMON RUSH FLAVOR (SODIUM FLUORIDE .24 [Suspect]
     Dosage: OZ, 1 ONLY, ORAL
     Route: 048

REACTIONS (4)
  - INCORRECT ROUTE OF DRUG ADMINISTRATION [None]
  - INTENTIONAL DRUG MISUSE [None]
  - LOSS OF CONSCIOUSNESS [None]
  - UNEVALUABLE EVENT [None]
